FAERS Safety Report 7244939-0 (Version None)
Quarter: 2011Q1

REPORT INFORMATION
  Report Type: 
  Country: None (occurrence: None)
  Receive Date: 20110126
  Receipt Date: 20110111
  Transmission Date: 20110831
  Serious: Yes (Hospitalization)
  Sender: FDA-Public Use
  Company Number: FR-ELI_LILLY_AND_COMPANY-FR201008006212

PATIENT
  Age: 46 Year
  Sex: Female
  Weight: 52 kg

DRUGS (5)
  1. MYFORTIC [Concomitant]
     Indication: HYPERTENSION
     Dosage: 350 MG, 2/D
     Route: 048
  2. CORTANCYL [Concomitant]
     Indication: ANTIPHOSPHOLIPID ANTIBODIES
     Dosage: 2 MG, DAILY (1/D)
     Route: 048
     Dates: start: 19950101
  3. MOPRAL [Concomitant]
     Dosage: 20 MG, DAILY (1/D)
     Route: 048
  4. FORTEO [Suspect]
     Indication: OSTEOPOROSIS
     Dosage: 20 UG, DAILY (1/D)
     Route: 058
     Dates: start: 20100628
  5. OROCAL D3 [Concomitant]
     Dosage: UNK, DAILY (1/D)
     Route: 048
     Dates: start: 19950101

REACTIONS (3)
  - CHEST PAIN [None]
  - DISLOCATION OF STERNUM [None]
  - BACK PAIN [None]
